FAERS Safety Report 8284590-7 (Version None)
Quarter: 2012Q2

REPORT INFORMATION
  Report Type: 
  Country: None (occurrence: None)
  Receive Date: 20120413
  Receipt Date: 20111115
  Transmission Date: 20120825
  Serious: No
  Sender: FDA-Public Use
  Company Number: US-ASTRAZENECA-2011SE69814

PATIENT
  Age: 61 Year
  Sex: Female

DRUGS (3)
  1. TOPROL-XL [Concomitant]
  2. CRESTOR [Concomitant]
  3. NEXIUM [Suspect]
     Route: 048

REACTIONS (3)
  - DRUG DOSE OMISSION [None]
  - PERIHEPATIC DISCOMFORT [None]
  - DYSPEPSIA [None]
